FAERS Safety Report 14141301 (Version 1)
Quarter: 2017Q4

REPORT INFORMATION
  Report Type: Spontaneous
  Country: US (occurrence: US)
  Receive Date: 20171030
  Receipt Date: 20171030
  Transmission Date: 20180321
  Serious: No
  Sender: FDA-Public Use
  Company Number: US-009507513-1710USA003875

PATIENT
  Age: 20 Year
  Sex: Female

DRUGS (4)
  1. VARIVAX [Suspect]
     Active Substance: VARICELLA-ZOSTER VIRUS STRAIN OKA/MERCK LIVE ANTIGEN
     Indication: PROPHYLAXIS
     Dosage: .5 ML
     Route: 058
     Dates: start: 20170331, end: 20170331
  2. STERILE DILUENT [Suspect]
     Active Substance: WATER
     Dosage: UNK
  3. IRON (UNSPECIFIED) (+) VITAMINS (UNSPECIFIED) [Concomitant]
     Dosage: UNK
  4. VITAMINS (UNSPECIFIED) [Concomitant]
     Active Substance: VITAMINS
     Dosage: UNK

REACTIONS (3)
  - Exposure during pregnancy [Unknown]
  - Product use issue [Unknown]
  - No adverse event [Unknown]

NARRATIVE: CASE EVENT DATE: 20170331
